FAERS Safety Report 19155999 (Version 2)
Quarter: 2021Q3

REPORT INFORMATION
  Report Type: Spontaneous
  Country: JP (occurrence: JP)
  Receive Date: 20210420
  Receipt Date: 20210715
  Transmission Date: 20211014
  Serious: Yes (Other)
  Sender: FDA-Public Use
  Company Number: JP-JNJFOC-20210432213

PATIENT
  Age: 65 Year
  Sex: Male
  Weight: 65 kg

DRUGS (2)
  1. TREMFYA [Suspect]
     Active Substance: GUSELKUMAB
     Indication: PSORIASIS
     Dosage: EVERY 8 TO 10 WEEKS
     Route: 058
     Dates: start: 20190403
  2. TREMFYA [Suspect]
     Active Substance: GUSELKUMAB
     Dosage: EVERY 8 TO 10 WEEKS
     Route: 058
     Dates: start: 20200618

REACTIONS (1)
  - Gastrointestinal stromal tumour [Recovered/Resolved]
